FAERS Safety Report 20032161 (Version 1)
Quarter: 2021Q4

REPORT INFORMATION
  Report Type: Spontaneous
  Country: US (occurrence: US)
  Receive Date: 20211103
  Receipt Date: 20211103
  Transmission Date: 20220304
  Serious: No
  Sender: FDA-Public Use
  Company Number: US-ALLERGAN-2129834US

PATIENT

DRUGS (6)
  1. VRAYLAR [Suspect]
     Active Substance: CARIPRAZINE
     Indication: Substance use disorder
     Dosage: UNK
  2. VRAYLAR [Suspect]
     Active Substance: CARIPRAZINE
     Indication: Schizoaffective disorder
  3. VRAYLAR [Suspect]
     Active Substance: CARIPRAZINE
     Indication: Borderline personality disorder
  4. VRAYLAR [Suspect]
     Active Substance: CARIPRAZINE
     Indication: Major depression
  5. VRAYLAR [Suspect]
     Active Substance: CARIPRAZINE
     Indication: Autism spectrum disorder
  6. VRAYLAR [Suspect]
     Active Substance: CARIPRAZINE
     Indication: Bipolar disorder

REACTIONS (1)
  - Off label use [Unknown]
